FAERS Safety Report 7910865-4 (Version None)
Quarter: 2011Q4

REPORT INFORMATION
  Report Type: 
  Country: None (occurrence: None)
  Receive Date: 20111114
  Receipt Date: 20111103
  Transmission Date: 20120403
  Serious: Yes (Hospitalization)
  Sender: FDA-Public Use
  Company Number: US-BIOGENIDEC-2011BI038348

PATIENT
  Age: 70 Year
  Sex: Female
  Weight: 84 kg

DRUGS (33)
  1. AVONEX [Suspect]
     Indication: MULTIPLE SCLEROSIS
     Route: 030
     Dates: start: 20080125
  2. BACLOFEN [Concomitant]
  3. RHINOCORT [Concomitant]
     Route: 045
  4. NYSTATIN [Concomitant]
  5. BONIVA [Concomitant]
     Route: 048
  6. CYCLOBENZAPRINE [Concomitant]
     Indication: MUSCLE SPASMS
     Route: 048
  7. ZYRTEC [Concomitant]
  8. MIRALAX [Concomitant]
  9. MULTI-VITAMIN [Concomitant]
     Route: 048
  10. HYDROCODONE BITARTRATE AND ACETAMINOPHEN [Concomitant]
     Indication: PAIN
     Route: 048
  11. BACTROBAN [Concomitant]
     Indication: DECUBITUS ULCER
  12. CELEBREX [Concomitant]
     Route: 048
  13. SINEMET [Concomitant]
     Route: 048
  14. LOTRISONE [Concomitant]
  15. COMPAZINE [Concomitant]
     Route: 054
  16. SYNALAR [Concomitant]
     Indication: RASH
     Route: 061
  17. BACTROBAN [Concomitant]
     Route: 061
  18. NEURONTIN [Concomitant]
     Indication: NEURALGIA
     Route: 048
  19. ASPIRIN [Concomitant]
     Route: 048
  20. ASCORBIC ACID [Concomitant]
     Route: 048
  21. ALPHAGAN P [Concomitant]
  22. TIMOLOL MALEATE [Concomitant]
  23. RECLAST [Concomitant]
     Dates: start: 20081201
  24. FISH OIL [Concomitant]
     Route: 048
  25. CALCIUM [Concomitant]
     Route: 048
  26. FLEXERIL [Concomitant]
  27. FOSAMAX [Concomitant]
  28. NITROFURANTOIN [Concomitant]
     Route: 048
  29. VITAMIN D [Concomitant]
     Route: 048
  30. VITAMIN E [Concomitant]
     Route: 048
  31. ALLEGRA [Concomitant]
     Route: 048
  32. PREMARIN [Concomitant]
     Route: 067
     Dates: end: 20030101
  33. KETOCONAZOLE [Concomitant]
     Indication: FUNGAL SKIN INFECTION
     Route: 061

REACTIONS (6)
  - SPINAL COMPRESSION FRACTURE [None]
  - SPONDYLOLISTHESIS [None]
  - LUMBAR SPINAL STENOSIS [None]
  - SPINAL OSTEOARTHRITIS [None]
  - PROCEDURAL COMPLICATION [None]
  - POSTOPERATIVE WOUND INFECTION [None]
